FAERS Safety Report 25078190 (Version 1)
Quarter: 2025Q1

REPORT INFORMATION
  Report Type: Spontaneous
  Country: TR (occurrence: TR)
  Receive Date: 20250314
  Receipt Date: 20250314
  Transmission Date: 20250408
  Serious: Yes (Death)
  Sender: AMGEN
  Company Number: TR-AMGEN-TURSP2025045300

PATIENT

DRUGS (1)
  1. BEVACIZUMAB [Suspect]
     Active Substance: BEVACIZUMAB
     Indication: Brain neoplasm
     Route: 065

REACTIONS (2)
  - Brain neoplasm [Fatal]
  - Off label use [Unknown]
